FAERS Safety Report 15686762 (Version 1)
Quarter: 2018Q4

REPORT INFORMATION
  Report Type: Report from Study
  Country: IE (occurrence: IE)
  Receive Date: 20181204
  Receipt Date: 20181204
  Transmission Date: 20190205
  Serious: Yes (Death)
  Sender: FDA-Public Use
  Company Number: IE-ACTELION-A-US2018-182992

PATIENT
  Age: 42 Year
  Sex: Male

DRUGS (1)
  1. VENTAVIS [Suspect]
     Active Substance: ILOPROST
     Indication: PULMONARY ARTERIAL HYPERTENSION
     Dosage: 10 MCG/ML, 6ID
     Route: 055
     Dates: start: 20141019

REACTIONS (1)
  - Death [Fatal]

NARRATIVE: CASE EVENT DATE: 20181129
